FAERS Safety Report 25112362 (Version 1)
Quarter: 2025Q1

REPORT INFORMATION
  Report Type: Spontaneous
  Country: US (occurrence: None)
  Receive Date: 20250321
  Receipt Date: 20250321
  Transmission Date: 20250409
  Serious: Yes (Life-Threatening, Hospitalization, Disabling, Other)
  Sender: FDA-CTU
  Company Number: None

PATIENT
  Age: 53 Year
  Sex: Female

DRUGS (8)
  1. REMDESIVIR [Suspect]
     Active Substance: REMDESIVIR
     Indication: Acute respiratory distress syndrome
     Dates: start: 20210610, end: 20210614
  2. REMDESIVIR [Suspect]
     Active Substance: REMDESIVIR
     Indication: COVID-19 pneumonia
  3. REMDESIVIR [Suspect]
     Active Substance: REMDESIVIR
     Indication: COVID-19 pneumonia
  4. LEVOTHYROXINE [Concomitant]
     Active Substance: LEVOTHYROXINE
  5. VITAMIN C [Concomitant]
     Active Substance: ASCORBIC ACID
  6. VITAMIN D3 [Concomitant]
     Active Substance: CHOLECALCIFEROL
  7. VITAMINS [Concomitant]
     Active Substance: VITAMINS
  8. ZINC [Concomitant]
     Active Substance: ZINC

REACTIONS (17)
  - Cardiac failure [None]
  - Hepatic failure [None]
  - Pain of skin [None]
  - Arthralgia [None]
  - Myalgia [None]
  - Peripheral swelling [None]
  - Synovial cyst [None]
  - Arthritis [None]
  - Fatigue [None]
  - Brain fog [None]
  - Lymphadenopathy [None]
  - Claustrophobia [None]
  - Memory impairment [None]
  - Hyperhidrosis [None]
  - Nephrolithiasis [None]
  - Sleep apnoea syndrome [None]
  - General physical health deterioration [None]

NARRATIVE: CASE EVENT DATE: 20210610
